FAERS Safety Report 9274468 (Version 1)
Quarter: 2013Q2

REPORT INFORMATION
  Report Type: Report from Study
  Country: US (occurrence: US)
  Receive Date: 20130507
  Receipt Date: 20130507
  Transmission Date: 20140414
  Serious: No
  Sender: FDA-Public Use
  Company Number: US-009507513-1305USA002017

PATIENT
  Sex: Female
  Weight: 60.32 kg

DRUGS (2)
  1. IMPLANON [Suspect]
     Dosage: UNK
     Route: 059
     Dates: start: 20100730, end: 20130503
  2. IMPLANON [Suspect]
     Dosage: UNK
     Route: 059
     Dates: start: 20130503

REACTIONS (2)
  - Implant site fibrosis [Unknown]
  - Device kink [Unknown]
